FAERS Safety Report 5252252-6 (Version None)
Quarter: 2007Q1

REPORT INFORMATION
  Report Type: 
  Country: None (occurrence: None)
  Receive Date: 20070301
  Receipt Date: 20070220
  Transmission Date: 20070707
  Serious: No
  Sender: FDA-Public Use
  Company Number: PHBS2007JP02374

PATIENT
  Age: 76 Year
  Sex: Male

DRUGS (6)
  1. DIOVAN [Suspect]
     Indication: HYPERTENSION
     Route: 048
     Dates: start: 20060822, end: 20061030
  2. DIOVAN [Suspect]
     Dosage: 80 MG, QD
     Route: 048
     Dates: start: 20061031, end: 20061218
  3. DIOVAN [Suspect]
     Dosage: 160 MG/DAY
     Route: 048
     Dates: start: 20061219
  4. BUFFERIN [Concomitant]
     Indication: ATRIAL FIBRILLATION
     Dosage: 81 MG, UNK
     Route: 048
  5. CIBENOL [Concomitant]
     Indication: ATRIAL FIBRILLATION
     Dosage: 300 MG, UNK
     Route: 048
  6. MEVALOTIN [Concomitant]
     Indication: HYPERLIPIDAEMIA
     Dosage: 10 MG, UNK
     Route: 048

REACTIONS (9)
  - BLOOD ALKALINE PHOSPHATASE INCREASED [None]
  - BLOOD LACTATE DEHYDROGENASE INCREASED [None]
  - C-REACTIVE PROTEIN INCREASED [None]
  - CELL MARKER INCREASED [None]
  - COUGH [None]
  - HAEMATOCRIT DECREASED [None]
  - HAEMOGLOBIN DECREASED [None]
  - INTERSTITIAL LUNG DISEASE [None]
  - NASOPHARYNGITIS [None]
